FAERS Safety Report 24119419 (Version 1)
Quarter: 2024Q3

REPORT INFORMATION
  Report Type: Report from Study
  Country: RU (occurrence: None)
  Receive Date: 20240722
  Receipt Date: 20240722
  Transmission Date: 20241016
  Serious: Yes (Hospitalization, Other)
  Sender: ASTRAZENECA
  Company Number: 2019SF88147

PATIENT
  Age: 63 Year
  Sex: Female
  Weight: 84 kg

DRUGS (1)
  1. BRILINTA [Suspect]
     Active Substance: TICAGRELOR
     Indication: Myocardial infarction
     Route: 048
     Dates: start: 20190401

REACTIONS (5)
  - Blood glucose increased [Unknown]
  - Malaise [Not Recovered/Not Resolved]
  - General physical health deterioration [Unknown]
  - Device occlusion [Unknown]
  - Asthenia [Not Recovered/Not Resolved]
